FAERS Safety Report 5680452-X (Version None)
Quarter: 2008Q1

REPORT INFORMATION
  Report Type: 
  Country: None (occurrence: None)
  Receive Date: 20080326
  Receipt Date: 20080318
  Transmission Date: 20080703
  Serious: Yes (Death, Life-Threatening, Hospitalization)
  Sender: FDA-Public Use
  Company Number: B0481566A

PATIENT
  Age: 5 Year
  Sex: Male
  Weight: 15 kg

DRUGS (2)
  1. ALBENDAZOLE [Suspect]
     Dosage: 400MG SINGLE DOSE
  2. IVERMECTIN [Suspect]
     Dosage: 200MCK SINGLE DOSE
     Route: 065

REACTIONS (16)
  - ABDOMINAL DISTENSION [None]
  - ABDOMINAL PAIN [None]
  - ABSCESS [None]
  - ASTHENIA [None]
  - CREPITATIONS [None]
  - DYSPNOEA [None]
  - IRRITABILITY [None]
  - LOCAL SWELLING [None]
  - LOSS OF CONSCIOUSNESS [None]
  - MOUTH ULCERATION [None]
  - PYREXIA [None]
  - RESPIRATORY DISTRESS [None]
  - SKIN LESION [None]
  - STEVENS-JOHNSON SYNDROME [None]
  - TENDERNESS [None]
  - TOXIC EPIDERMAL NECROLYSIS [None]
